FAERS Safety Report 18920603 (Version 1)
Quarter: 2021Q1

REPORT INFORMATION
  Report Type: Spontaneous
  Country: FR (occurrence: FR)
  Receive Date: 20210222
  Receipt Date: 20210222
  Transmission Date: 20210420
  Serious: Yes (Other)
  Sender: FDA-Public Use
  Company Number: FR-AUROBINDO-AUR-APL-2021-007054

PATIENT
  Age: 65 Year
  Sex: Female
  Weight: 89 kg

DRUGS (3)
  1. AZITHROMYCIN ANHYDROUS. [Suspect]
     Active Substance: AZITHROMYCIN ANHYDROUS
     Indication: COVID-19 TREATMENT
     Dosage: 500 MILLIGRAM, ONCE A DAY
     Route: 048
     Dates: start: 20210204, end: 20210206
  2. COLCHIMAX (COLCHICINE\PAPAVER SOMNIFERUM POWDER\TIEMONIUM METHYLSULPHATE) [Interacting]
     Active Substance: COLCHICINE\OPIUM\TIEMONIUM METHYLSULFATE
     Indication: COVID-19 TREATMENT
     Dosage: 2 DOSAGE FORM, ONCE A DAY
     Route: 048
     Dates: start: 20210205, end: 20210206
  3. APROVEL [Concomitant]
     Active Substance: IRBESARTAN
     Indication: PRODUCT USED FOR UNKNOWN INDICATION
     Dosage: UNK
     Route: 048

REACTIONS (2)
  - Diarrhoea [Recovered/Resolved]
  - Contraindicated product prescribed [Recovered/Resolved]

NARRATIVE: CASE EVENT DATE: 20210206
